FAERS Safety Report 9349097 (Version 2)
Quarter: 2013Q3

REPORT INFORMATION
  Report Type: Spontaneous
  Country: FR (occurrence: FR)
  Receive Date: 20130614
  Receipt Date: 20130812
  Transmission Date: 20140515
  Serious: Yes (Death, Hospitalization, Other)
  Sender: FDA-Public Use
  Company Number: FR-TEVA-411945ISR

PATIENT
  Age: 84 Year
  Sex: Female

DRUGS (13)
  1. FUROSEMIDE TEVA 40 MG [Suspect]
     Dosage: 60 MILLIGRAM DAILY; 40 MG MORNING - 20 MG AT LUNCH
     Route: 048
  2. CRESTOR 10 [Concomitant]
     Dosage: 10 MILLIGRAM DAILY;
     Route: 048
  3. REPAGLINIDE TEVA 2 MG [Concomitant]
     Dosage: 6 MILLIGRAM DAILY;
     Route: 048
  4. LEVEMIR FLEXPEN [Concomitant]
     Route: 042
  5. ALPRAZOLAM TEVA 0.25 [Concomitant]
     Dosage: .75 MILLIGRAM DAILY;
     Route: 048
  6. PNEUMOREL 80 [Concomitant]
     Dosage: 240 MILLIGRAM DAILY;
     Route: 048
  7. EFFERALGAN 500 [Concomitant]
     Dosage: 3-4 DOSES DAILY ORALLY
     Route: 048
  8. KARDEGIC 300 [Concomitant]
     Dosage: 300 MILLIGRAM DAILY;
     Route: 048
  9. ESOMEPRAZOLE TEVA 20 [Concomitant]
     Dosage: 20 MILLIGRAM DAILY; EVENING
     Route: 048
  10. AMLODIPINE TEVA 10 [Concomitant]
     Dosage: 10 MILLIGRAM DAILY; MORNING
     Route: 048
  11. LOSARTAN TEVA 50 [Concomitant]
     Dosage: 50 MILLIGRAM DAILY; AT LUNCH
     Route: 048
  12. NITRIDERM 10 [Concomitant]
     Dosage: 10 MILLIGRAM DAILY;
     Route: 062
  13. TARDYFERON B9 [Concomitant]
     Dosage: 1 DOSAGE FORMS DAILY;
     Route: 048

REACTIONS (6)
  - Pulmonary embolism [Fatal]
  - Bronchitis [Unknown]
  - Diabetes mellitus inadequate control [Unknown]
  - Oedema [Unknown]
  - Malaise [Unknown]
  - Somnolence [Unknown]
